FAERS Safety Report 10901009 (Version 1)
Quarter: 2015Q1

REPORT INFORMATION
  Report Type: Spontaneous
  Country: SE (occurrence: SE)
  Receive Date: 20150310
  Receipt Date: 20150310
  Transmission Date: 20150721
  Serious: Yes (Other)
  Sender: FDA-Public Use
  Company Number: SE-ASTRAZENECA-2015SE21180

PATIENT
  Sex: Female

DRUGS (5)
  1. SIMVASTATIN. [Concomitant]
     Active Substance: SIMVASTATIN
  2. FELODIPINE. [Suspect]
     Active Substance: FELODIPINE
     Indication: BLOOD PRESSURE ABNORMAL
     Route: 048
  3. TROMBYL [Concomitant]
     Active Substance: ASPIRIN
  4. PULMICORT TURBUHALER [Concomitant]
     Active Substance: BUDESONIDE
     Dosage: AS REQUIRED
  5. OXIS [Concomitant]
     Active Substance: FORMOTEROL FUMARATE
     Dosage: AS REQUIRED

REACTIONS (4)
  - Cerebrovascular accident [Unknown]
  - Cough [Unknown]
  - Stress [Unknown]
  - Palpitations [Unknown]
